FAERS Safety Report 8004477-4 (Version None)
Quarter: 2011Q4

REPORT INFORMATION
  Report Type: 
  Country: None (occurrence: None)
  Receive Date: 20111221
  Receipt Date: 20111221
  Transmission Date: 20120403
  Serious: Yes (Hospitalization)
  Sender: FDA-Public Use
  Company Number: None

PATIENT
  Sex: Female
  Weight: 53.63 kg

DRUGS (2)
  1. CARBOPLATIN [Suspect]
     Dosage: 398MG
     Dates: end: 20110310
  2. TAXOL [Suspect]
     Dosage: 278 MG
     Dates: end: 20110317

REACTIONS (12)
  - NAUSEA [None]
  - SMALL INTESTINAL OBSTRUCTION [None]
  - ELECTROCARDIOGRAM QT PROLONGED [None]
  - FEBRILE NEUTROPENIA [None]
  - HAEMOGLOBIN DECREASED [None]
  - NEUTROPHIL COUNT DECREASED [None]
  - BLOOD MAGNESIUM DECREASED [None]
  - BLOOD POTASSIUM DECREASED [None]
  - WHITE BLOOD CELL COUNT DECREASED [None]
  - PLATELET COUNT DECREASED [None]
  - VOMITING [None]
  - ELECTROLYTE IMBALANCE [None]
